FAERS Safety Report 6019155-0 (Version None)
Quarter: 2008Q4

REPORT INFORMATION
  Report Type: 
  Country: None (occurrence: None)
  Receive Date: 20081224
  Receipt Date: 20081215
  Transmission Date: 20090506
  Serious: Yes (Death, Hospitalization)
  Sender: FDA-Public Use
  Company Number: BG-ASTRAZENECA-2008SE05672

PATIENT
  Sex: Male

DRUGS (5)
  1. CRESTOR [Suspect]
     Route: 048
     Dates: start: 20080826
  2. METHYLPREDNISOLONE 16MG TAB [Concomitant]
  3. AMLODIPINE [Concomitant]
     Dates: start: 20080826
  4. ISOSORBIDE DINITRATE [Concomitant]
     Dates: start: 20080826
  5. PERINDOPRIL [Concomitant]
     Dates: start: 20080826

REACTIONS (1)
  - RHABDOMYOLYSIS [None]
